FAERS Safety Report 16485798 (Version 1)
Quarter: 2019Q2

REPORT INFORMATION
  Report Type: Other
  Country: None (occurrence: US)
  Receive Date: 20190627
  Receipt Date: 20190627
  Transmission Date: 20190711
  Serious: Yes (Hospitalization, Other)
  Sender: FDA-Public Use
  Company Number: US-MEDAC PHARMA, INC.-2069720

PATIENT
  Age: 59 Year
  Sex: Male

DRUGS (4)
  1. METHOTREXATE. [Suspect]
     Active Substance: METHOTREXATE
     Indication: RHEUMATOID ARTHRITIS
  2. PREDNISONE. [Concomitant]
     Active Substance: PREDNISONE
  3. DOXYCYCLINE. [Suspect]
     Active Substance: DOXYCYCLINE
  4. LEFLUNOMIDE. [Concomitant]
     Active Substance: LEFLUNOMIDE

REACTIONS (9)
  - Toxicity to various agents [Unknown]
  - Dyspnoea [Unknown]
  - Pancytopenia [Recovered/Resolved]
  - Blood pressure decreased [Unknown]
  - Drug interaction [Unknown]
  - Productive cough [Unknown]
  - Tachycardia [Unknown]
  - Mouth ulceration [Unknown]
  - Bone marrow failure [Recovered/Resolved]
